FAERS Safety Report 10459163 (Version 1)
Quarter: 2014Q3

REPORT INFORMATION
  Report Type: Spontaneous
  Country: US (occurrence: None)
  Receive Date: 20140915
  Receipt Date: 20140915
  Transmission Date: 20150326
  Serious: Yes (Hospitalization)
  Sender: FDA-Public Use
  Company Number: IMP_07908_2014

PATIENT
  Age: 15 Year
  Sex: Male

DRUGS (9)
  1. METFORMIN [Concomitant]
     Active Substance: METFORMIN HYDROCHLORIDE
  2. CLONAZEPAM. [Concomitant]
     Active Substance: CLONAZEPAM
  3. ANTISEPTICS [Suspect]
     Active Substance: UNSPECIFIED INGREDIENT
     Indication: PRODUCT USED FOR UNKNOWN INDICATION
     Route: 055
  4. INSULINE GLARGINE [Concomitant]
  5. VALPROATE [Suspect]
     Active Substance: VALPROATE SODIUM
     Indication: BIPOLAR DISORDER
     Route: 048
  6. NOVOLOG [Concomitant]
     Active Substance: INSULIN ASPART
  7. LITHIUM [Concomitant]
     Active Substance: LITHIUM CARBONATE
  8. DIPHENHYDRAMINE [Concomitant]
     Active Substance: DIPHENHYDRAMINE
  9. CHLORPROMAZINE [Concomitant]
     Active Substance: CHLORPROMAZINE

REACTIONS (7)
  - Type 2 diabetes mellitus [None]
  - Treatment noncompliance [None]
  - Hyperammonaemic encephalopathy [None]
  - Bipolar disorder [None]
  - Condition aggravated [None]
  - Leukopenia [None]
  - Drug interaction [None]
